FAERS Safety Report 6508324-9 (Version None)
Quarter: 2009Q4

REPORT INFORMATION
  Report Type: 
  Country: None (occurrence: None)
  Receive Date: 20091221
  Receipt Date: 20081105
  Transmission Date: 20100525
  Serious: No
  Sender: FDA-Public Use
  Company Number: US-ASTRAZENECA-2008UW23057

PATIENT
  Age: 69 Year
  Sex: Female
  Weight: 90.7 kg

DRUGS (11)
  1. CRESTOR [Suspect]
     Indication: BLOOD CHOLESTEROL INCREASED
     Route: 048
     Dates: start: 20081001
  2. NIASPAN [Concomitant]
  3. ARTHROTEC [Concomitant]
  4. AGGRONOX [Concomitant]
  5. NIFEDICAL [Concomitant]
  6. HYDROCHLOROTHIAZIDE [Concomitant]
  7. ALTACE [Concomitant]
  8. LANOXIN [Concomitant]
  9. ISOSORBIDE [Concomitant]
  10. ASPIRIN [Concomitant]
  11. NITROGLYCERIN [Concomitant]

REACTIONS (3)
  - ASTHENIA [None]
  - CHEST PAIN [None]
  - HEADACHE [None]
